FAERS Safety Report 18221879 (Version 1)
Quarter: 2020Q3

REPORT INFORMATION
  Report Type: Report from Study
  Country: CA (occurrence: CA)
  Receive Date: 20200902
  Receipt Date: 20200902
  Transmission Date: 20201103
  Serious: Yes (Hospitalization, Other)
  Sender: FDA-Public Use
  Company Number: CA-ACCORD-198440

PATIENT
  Age: 19 Year
  Sex: Female

DRUGS (16)
  1. TERBUTALINE [Concomitant]
     Active Substance: TERBUTALINE
  2. RITUXIMAB. [Suspect]
     Active Substance: RITUXIMAB
     Indication: VASCULITIS
     Dosage: 1 EVERY 1 WEEKS
     Route: 042
  3. MYCOPHENOLIC ACID. [Suspect]
     Active Substance: MYCOPHENOLIC ACID
     Indication: PRODUCT USED FOR UNKNOWN INDICATION
  4. NAPROXEN. [Concomitant]
     Active Substance: NAPROXEN
  5. CITALOPRAM [Concomitant]
     Active Substance: CITALOPRAM HYDROBROMIDE
  6. PARACETAMOL [Concomitant]
     Active Substance: ACETAMINOPHEN
     Indication: PREMEDICATION
     Route: 048
  7. DEXILANT [Concomitant]
     Active Substance: DEXLANSOPRAZOLE
  8. SINGULAIR [Concomitant]
     Active Substance: MONTELUKAST SODIUM
  9. DESOXIMETASONE. [Concomitant]
     Active Substance: DESOXIMETASONE
  10. XELJANZ [Suspect]
     Active Substance: TOFACITINIB CITRATE
     Indication: PRODUCT USED FOR UNKNOWN INDICATION
  11. RITUXIMAB. [Suspect]
     Active Substance: RITUXIMAB
     Indication: VASCULITIS
     Dosage: 1 EVERY 1 WEEKS
     Route: 042
  12. GRAVOL [Concomitant]
     Active Substance: DIMENHYDRINATE
     Indication: NAUSEA
     Route: 048
  13. BISACODYL. [Concomitant]
     Active Substance: BISACODYL
  14. SYMBICORT [Concomitant]
     Active Substance: BUDESONIDE\FORMOTEROL FUMARATE DIHYDRATE
  15. METHYLPREDNISOLONE. [Concomitant]
     Active Substance: METHYLPREDNISOLONE
     Indication: PREMEDICATION
     Route: 042
  16. DIPHENHYDRAMINE. [Concomitant]
     Active Substance: DIPHENHYDRAMINE
     Indication: PREMEDICATION
     Route: 048

REACTIONS (13)
  - Fallopian tube disorder [Not Recovered/Not Resolved]
  - Peritonitis [Not Recovered/Not Resolved]
  - Arthralgia [Not Recovered/Not Resolved]
  - Blood pressure diastolic abnormal [Not Recovered/Not Resolved]
  - Blood urine present [Not Recovered/Not Resolved]
  - Nausea [Not Recovered/Not Resolved]
  - Small intestinal haemorrhage [Not Recovered/Not Resolved]
  - Intentional product use issue [Unknown]
  - Headache [Not Recovered/Not Resolved]
  - Pyrexia [Not Recovered/Not Resolved]
  - Appendix disorder [Not Recovered/Not Resolved]
  - Blood pressure diastolic decreased [Not Recovered/Not Resolved]
  - Haematochezia [Not Recovered/Not Resolved]
